FAERS Safety Report 9040002 (Version 2)
Quarter: 2013Q2

REPORT INFORMATION
  Report Type: Report from Study
  Country: US (occurrence: US)
  Receive Date: 20130130
  Receipt Date: 20130422
  Transmission Date: 20140414
  Serious: Yes (Other)
  Sender: FDA-Public Use
  Company Number: PHEH2013US002530

PATIENT
  Age: 67 Year
  Sex: Female
  Weight: 55.79 kg

DRUGS (5)
  1. AFINITOR [Suspect]
     Indication: PANCREATIC CARCINOMA
     Dosage: 10 MG, QD
     Route: 048
     Dates: start: 20121003
  2. INSULIN GLARGINE [Concomitant]
     Dosage: 12 U, QD
     Route: 058
  3. POTASSIUM [Concomitant]
     Dosage: 20 MEQ, QD
  4. COUMADINE [Concomitant]
     Dosage: 50 MG, UNK
     Route: 048
  5. SANDOSTATINA LAR [Concomitant]
     Dosage: 30 MG, UNK
     Route: 030

REACTIONS (9)
  - Fall [Recovering/Resolving]
  - Injury [Recovering/Resolving]
  - Wound [Recovering/Resolving]
  - Hypoglycaemia [Unknown]
  - Asthenia [Unknown]
  - Dizziness [Unknown]
  - Hyperglycaemia [Unknown]
  - Fatigue [Unknown]
  - Vision blurred [Unknown]
